FAERS Safety Report 22940605 (Version 5)
Quarter: 2023Q4

REPORT INFORMATION
  Report Type: Spontaneous
  Country: RU (occurrence: RU)
  Receive Date: 20230913
  Receipt Date: 20231019
  Transmission Date: 20240109
  Serious: Yes (Other)
  Sender: FDA-Public Use
  Company Number: RU-AMERICAN REGENT INC-2023002181

PATIENT
  Sex: Female

DRUGS (1)
  1. FERINJECT [Suspect]
     Active Substance: FERRIC CARBOXYMALTOSE
     Indication: Product used for unknown indication
     Dosage: 100 MILLIGRAM, DILUTED 100 ML IN SODIUM CHLORIDE (NACL)

REACTIONS (8)
  - Asphyxia [Unknown]
  - Fear of death [Unknown]
  - Muscle spasms [Unknown]
  - Product preparation issue [Unknown]
  - Erythema [Unknown]
  - Dyspnoea [Unknown]
  - Pyrexia [Unknown]
  - Product quality issue [Unknown]
